FAERS Safety Report 9015367 (Version 5)
Quarter: 2013Q2

REPORT INFORMATION
  Report Type: Report from Study
  Country: US (occurrence: US)
  Receive Date: 20130116
  Receipt Date: 20130426
  Transmission Date: 20140414
  Serious: Yes (Hospitalization)
  Sender: FDA-Public Use
  Company Number: US-VERTEX PHARMACEUTICALS INC.-2013-000574

PATIENT
  Age: 51 Year
  Sex: Female

DRUGS (4)
  1. VX-950 (TELAPREVIR) [Suspect]
     Indication: HEPATITIS C
     Dosage: 750 MG, TID
     Route: 048
     Dates: start: 2012
  2. PEGASYS [Suspect]
     Indication: HEPATITIS C
     Dosage: 180 ?G, QW
     Route: 058
     Dates: start: 2012
  3. RIBAPAK [Suspect]
     Indication: HEPATITIS C
     Dosage: 400 MG QAM, 600 MG QPM
     Route: 048
     Dates: start: 2012
  4. RIBAPAK [Suspect]
     Dosage: 600 MG, QD
     Dates: start: 201301

REACTIONS (17)
  - Anaemia [Unknown]
  - White blood cell count decreased [Unknown]
  - Depression [Unknown]
  - Anxiety [Unknown]
  - Vision blurred [Unknown]
  - Dysuria [Unknown]
  - Dysphagia [Unknown]
  - Influenza like illness [Unknown]
  - Pyrexia [Unknown]
  - Dry mouth [Unknown]
  - Pain [Unknown]
  - Abdominal pain upper [Unknown]
  - Abdominal pain lower [Unknown]
  - Injection site pain [Unknown]
  - Rash [Unknown]
  - Retching [Unknown]
  - Pruritus generalised [Unknown]
